FAERS Safety Report 13751975 (Version 2)
Quarter: 2017Q3

REPORT INFORMATION
  Report Type: Spontaneous
  Country: IT (occurrence: IT)
  Receive Date: 20170713
  Receipt Date: 20170725
  Transmission Date: 20171127
  Serious: Yes (Hospitalization)
  Sender: FDA-Public Use
  Company Number: IT-009507513-1707ITA001524

PATIENT
  Age: 36 Year
  Sex: Male

DRUGS (9)
  1. VITAMIN A [Suspect]
     Active Substance: VITAMIN A
     Indication: MUSCLE BUILDING THERAPY
     Dosage: 40000 IU (40000 IU, 1 D)
     Route: 065
  2. NANDROLONE DECANOATE. [Suspect]
     Active Substance: NANDROLONE DECANOATE
     Indication: MUSCLE BUILDING THERAPY
     Dosage: DAILY DOSE UNKNOWN
     Route: 065
  3. SOMATROPIN. [Suspect]
     Active Substance: SOMATROPIN
     Indication: MUSCLE BUILDING THERAPY
     Dosage: 4.8 IUM (4.8 IU,1 D)
     Route: 030
  4. TESTOSTERONE PROPIONATE. [Concomitant]
     Active Substance: TESTOSTERONE PROPIONATE
     Indication: MUSCLE BUILDING THERAPY
     Dosage: TAKEN FROM 2 TO 3 TIMES PER WEEK (UNKNOWN)
     Route: 030
  5. GONADOTROPIN, CHORIONIC [Suspect]
     Active Substance: CHORIOGONADOTROPIN ALFA
     Indication: MUSCLE BUILDING THERAPY
     Dosage: DAILY DOSE UNKNOWN
     Route: 065
  6. TRENBOLONE ACETATE [Concomitant]
     Active Substance: TRENBOLONE ACETATE
     Indication: MUSCLE BUILDING THERAPY
     Dosage: TAKEN FROM 2 TO 3 TIMES PER WEEK (UNKNOWN)
     Route: 030
  7. TESTOVIRON [Concomitant]
     Active Substance: TESTOSTERONE
     Indication: MUSCLE BUILDING THERAPY
     Dosage: DAILY DOSE UNKNOWN
     Route: 030
  8. TESTOSTERONE UNDECANOATE [Suspect]
     Active Substance: TESTOSTERONE UNDECANOATE
     Indication: MUSCLE BUILDING THERAPY
     Dosage: DAILY DOSE UNKNOWN
     Route: 065
  9. INSULIN [Suspect]
     Active Substance: INSULIN NOS
     Indication: MUSCLE BUILDING THERAPY
     Dosage: 5 IU, QD
     Route: 058

REACTIONS (3)
  - Off label use [Unknown]
  - Drug use disorder [Unknown]
  - Intracranial pressure increased [Unknown]
